FAERS Safety Report 6881727-9 (Version None)
Quarter: 2010Q3

REPORT INFORMATION
  Report Type: 
  Country: None (occurrence: None)
  Receive Date: 20100729
  Receipt Date: 20100719
  Transmission Date: 20110219
  Serious: No
  Sender: FDA-Public Use
  Company Number: US-BIOGENIDEC-2010BI025045

PATIENT
  Age: 52 Year
  Sex: Female

DRUGS (1)
  1. AVONEX [Suspect]
     Indication: MULTIPLE SCLEROSIS
     Route: 030
     Dates: start: 20100522

REACTIONS (6)
  - DYSPHAGIA [None]
  - HEADACHE [None]
  - HYPOAESTHESIA FACIAL [None]
  - LETHARGY [None]
  - MOBILITY DECREASED [None]
  - PAIN [None]
